FAERS Safety Report 6663338-3 (Version None)
Quarter: 2010Q1

REPORT INFORMATION
  Report Type: 
  Country: None (occurrence: None)
  Receive Date: 20100331
  Receipt Date: 20100331
  Transmission Date: 20100710
  Serious: Yes (Other)
  Sender: FDA-Public Use
  Company Number: None

PATIENT
  Age: 26 Year
  Sex: Female
  Weight: 53.0709 kg

DRUGS (1)
  1. BUDEPRION SR 150MG TEVA [Suspect]
     Indication: DEPRESSION
     Dosage: 1 TABLET DAILY PO, 6 WKS FEB. THRU MAR 2010
     Route: 048

REACTIONS (3)
  - DRUG INEFFECTIVE [None]
  - MENTAL STATUS CHANGES [None]
  - PRODUCT SUBSTITUTION ISSUE [None]
